FAERS Safety Report 4482202-1 (Version None)
Quarter: 2004Q4

REPORT INFORMATION
  Report Type: 
  Country: None (occurrence: None)
  Receive Date: 20041020
  Receipt Date: 20041013
  Transmission Date: 20050328
  Serious: Yes (Death, Life-Threatening, Hospitalization)
  Sender: FDA-Public Use
  Company Number: 2004AP03727

PATIENT
  Age: 73 Year
  Sex: Male

DRUGS (6)
  1. XYLOCAINE [Suspect]
     Indication: INFILTRATION ANAESTHESIA
     Dosage: 10 ML
     Dates: start: 20030508, end: 20030508
  2. ANTITOXINS [Suspect]
     Dosage: 3 IU DAILY
     Dates: start: 20030508, end: 20030508
  3. ADRENAL HORMONE PREPARATIONS [Concomitant]
  4. GASTER [Concomitant]
  5. CEPHARANTHIN [Concomitant]
  6. SOLU-MEDROL [Concomitant]

REACTIONS (4)
  - ANAPHYLACTOID SHOCK [None]
  - BILIARY TRACT DISORDER [None]
  - CARDIO-RESPIRATORY ARREST [None]
  - DIALYSIS [None]
